FAERS Safety Report 16078989 (Version 1)
Quarter: 2019Q1

REPORT INFORMATION
  Report Type: Spontaneous
  Country: US (occurrence: US)
  Receive Date: 20190315
  Receipt Date: 20190315
  Transmission Date: 20190418
  Serious: Yes (Life-Threatening, Hospitalization)
  Sender: FDA-Public Use
  Company Number: US-MYLANLABS-2019M1023997

PATIENT
  Age: 36 Year
  Sex: Male

DRUGS (1)
  1. PENTOSTATIN. [Suspect]
     Active Substance: PENTOSTATIN
     Indication: HAIRY CELL LEUKAEMIA
     Dosage: 4 MILLIGRAM/SQ. METER, BIWEEKLY
     Route: 050

REACTIONS (3)
  - Septic shock [Recovered/Resolved]
  - Cellulitis [Recovering/Resolving]
  - Neutropenia [Recovered/Resolved]
